FAERS Safety Report 5010773-5 (Version None)
Quarter: 2006Q2

REPORT INFORMATION
  Report Type: 
  Country: None (occurrence: None)
  Receive Date: 20060525
  Receipt Date: 20060123
  Transmission Date: 20061013
  Serious: Yes (Death)
  Sender: FDA-Public Use
  Company Number: JP-ROCHE-433252

PATIENT
  Age: 81 Year
  Sex: Male
  Weight: 67.9 kg

DRUGS (10)
  1. TOCILIZUMAB [Concomitant]
     Indication: RHEUMATOID ARTHRITIS
     Dosage: LAST DOSE BEFORE EVENT ONSET: 11 JANUARY 2006
     Route: 042
     Dates: start: 20050601, end: 20060111
  2. TOCILIZUMAB [Concomitant]
     Dosage: PATIENT ENROLLED IN STUDY MRA012JP
     Route: 042
     Dates: start: 20040426, end: 20050427
  3. MISOPROSTOL [Suspect]
     Dates: start: 20041221
  4. DICLOFENAC SODIUM [Suspect]
     Dosage: OPTIMAL DOSE. START DATE BEFORE 29-MARCH-2004.
     Dates: start: 20040329
  5. PREDNISOLONE [Concomitant]
     Dates: start: 20050325
  6. PRANLUKAST HYDRATE [Concomitant]
     Dates: start: 20040914
  7. THEOPHYLLINE [Concomitant]
     Dosage: REPORTED AS THEOPYHLLINE
     Dates: start: 20041109
  8. SOFALCONE [Concomitant]
     Dates: start: 20041217
  9. FAMOTIDINE [Concomitant]
     Dates: start: 20050601
  10. DICLOFENAC SODIUM [Concomitant]
     Dosage: FORM TAPE.
     Dates: start: 20050629

REACTIONS (2)
  - BRONCHOPULMONARY ASPERGILLOSIS [None]
  - PULMONARY FIBROSIS [None]
